FAERS Safety Report 5636617-6 (Version None)
Quarter: 2008Q1

REPORT INFORMATION
  Report Type: 
  Country: None (occurrence: None)
  Receive Date: 20080219
  Receipt Date: 20080219
  Transmission Date: 20080703
  Serious: No
  Sender: FDA-Public Use
  Company Number: None

PATIENT
  Sex: Male

DRUGS (1)
  1. BYETTA [Suspect]
     Indication: DIABETES MELLITUS
     Dosage: 5MCG SQ
     Route: 058
     Dates: start: 20080208, end: 20080216

REACTIONS (2)
  - CONTUSION [None]
  - PHARMACEUTICAL PRODUCT COMPLAINT [None]
